FAERS Safety Report 7344525-8 (Version None)
Quarter: 2011Q1

REPORT INFORMATION
  Report Type: 
  Country: None (occurrence: None)
  Receive Date: 20110310
  Receipt Date: 20110225
  Transmission Date: 20110831
  Serious: Yes (Other)
  Sender: FDA-Public Use
  Company Number: PHHY2011US17133

PATIENT
  Age: 77 Year
  Sex: Female

DRUGS (1)
  1. PACLITAXEL [Suspect]
     Indication: BREAST CANCER
     Dosage: UNK

REACTIONS (12)
  - PAPULE [None]
  - SKIN OEDEMA [None]
  - NECROSIS [None]
  - DRUG ERUPTION [None]
  - SKIN PLAQUE [None]
  - ERYTHEMA [None]
  - TENDERNESS [None]
  - ACANTHOSIS [None]
  - NEUTROPHILIA [None]
  - SKIN LESION [None]
  - HYPERKERATOSIS [None]
  - PALMAR-PLANTAR ERYTHRODYSAESTHESIA SYNDROME [None]
